FAERS Safety Report 8852590 (Version 3)
Quarter: 2016Q3

REPORT INFORMATION
  Report Type: Report from Study
  Country: US (occurrence: US)
  Receive Date: 20121022
  Receipt Date: 20160801
  Transmission Date: 20161109
  Serious: Yes (Other)
  Sender: FDA-Public Use
  Company Number: US-ROCHE-1146047

PATIENT

DRUGS (5)
  1. RITUXIMAB [Suspect]
     Active Substance: RITUXIMAB
     Indication: CENTRAL NERVOUS SYSTEM LYMPHOMA
     Route: 042
  2. METHOTREXATE. [Suspect]
     Active Substance: METHOTREXATE
     Indication: CENTRAL NERVOUS SYSTEM LYMPHOMA
     Dosage: 8 GM/M2/DOSE OVER 4 HOURS
     Route: 042
  3. LEUCOVORIN. [Concomitant]
     Active Substance: LEUCOVORIN
     Route: 048
  4. NAHCO3 [Concomitant]
     Active Substance: SODIUM BICARBONATE
     Indication: PREMEDICATION
     Dosage: 150 MEQ/L AT 150-200 CC/HOUR OVER 4 HOURS
     Route: 065
  5. KCL [Concomitant]
     Active Substance: POTASSIUM CHLORIDE
     Indication: PREMEDICATION
     Dosage: 20 EQ/L AT 150-200 CC/JPUR OVER 4 HOURS
     Route: 065

REACTIONS (9)
  - Thrombocytopenia [Unknown]
  - Neutropenia [Unknown]
  - Anaemia [Unknown]
  - Nausea [Unknown]
  - Renal impairment [Unknown]
  - Fatigue [Unknown]
  - Renal failure [Unknown]
  - Transaminases increased [Unknown]
  - Infusion related reaction [Unknown]
